FAERS Safety Report 6259380-7 (Version None)
Quarter: 2009Q3

REPORT INFORMATION
  Report Type: 
  Country: None (occurrence: None)
  Receive Date: 20090706
  Receipt Date: 20090619
  Transmission Date: 20100115
  Serious: Yes (Hospitalization)
  Sender: FDA-Public Use
  Company Number: 2009AL004039

PATIENT
  Age: 63 Year
  Sex: Male

DRUGS (11)
  1. DIGOXIN [Suspect]
     Dosage: PO
     Route: 048
  2. HUMULIN R [Concomitant]
  3. LIPITOR [Concomitant]
  4. KLONOPIN [Concomitant]
  5. RISPERDAL [Concomitant]
  6. PAXIL [Concomitant]
  7. ASPIRIN [Concomitant]
  8. LISINOPRIL [Concomitant]
  9. PREDNISONE TAB [Concomitant]
  10. NORVASC [Concomitant]
  11. BACTRIM [Concomitant]

REACTIONS (7)
  - ASTHENIA [None]
  - AXILLARY MASS [None]
  - DYSPNOEA [None]
  - FLANK PAIN [None]
  - NAUSEA [None]
  - OEDEMA PERIPHERAL [None]
  - PRURITUS [None]
